FAERS Safety Report 7062832-3 (Version None)
Quarter: 2010Q4

REPORT INFORMATION
  Report Type: 
  Country: None (occurrence: None)
  Receive Date: 20101026
  Receipt Date: 20100224
  Transmission Date: 20110411
  Serious: No
  Sender: FDA-Public Use
  Company Number: US-PFIZER INC-2010024839

PATIENT
  Sex: Female
  Weight: 62.6 kg

DRUGS (5)
  1. LIPITOR [Suspect]
     Indication: ANGINA PECTORIS
     Dosage: 80 MG, UNK
     Route: 048
  2. LIPITOR [Suspect]
     Dosage: 10 MG, UNK
     Route: 048
  3. SYNTHROID [Suspect]
     Dosage: UNK
  4. DILTIAZEM [Concomitant]
     Dosage: UNK
  5. ZETIA [Concomitant]
     Dosage: UNK
     Route: 048

REACTIONS (1)
  - RASH [None]
